FAERS Safety Report 8149721-8 (Version None)
Quarter: 2012Q1

REPORT INFORMATION
  Report Type: 
  Country: None (occurrence: None)
  Receive Date: 20120218
  Receipt Date: 20111118
  Transmission Date: 20120608
  Serious: No
  Sender: FDA-Public Use
  Company Number: US-ALLERGAN-1115258US

PATIENT
  Age: 65 Year
  Sex: Female

DRUGS (1)
  1. BOTOX COSMETIC [Suspect]
     Indication: SKIN WRINKLING
     Dosage: UNK
     Route: 030

REACTIONS (9)
  - FAT TISSUE INCREASED [None]
  - MALAISE [None]
  - FACIAL PARESIS [None]
  - CRYING [None]
  - GENERAL PHYSICAL CONDITION ABNORMAL [None]
  - SKIN MASS [None]
  - RASH [None]
  - DEPRESSION [None]
  - EYELID PTOSIS [None]
